FAERS Safety Report 9282168 (Version 1)
Quarter: 2013Q2

REPORT INFORMATION
  Report Type: Spontaneous
  Country: US (occurrence: US)
  Receive Date: 20130510
  Receipt Date: 20130510
  Transmission Date: 20140414
  Serious: No
  Sender: FDA-Public Use
  Company Number: US-PFIZER INC-2013099112

PATIENT
  Age: 51 Year
  Sex: Male

DRUGS (1)
  1. DEPO-TESTOSTERONE [Suspect]
     Indication: HORMONE REPLACEMENT THERAPY
     Dosage: 200 MG, EVERY 3 WEEKS
     Dates: start: 201112

REACTIONS (4)
  - Product quality issue [Unknown]
  - Dizziness [Unknown]
  - Visual impairment [Unknown]
  - Rash [Unknown]
